FAERS Safety Report 13927192 (Version 4)
Quarter: 2018Q1

REPORT INFORMATION
  Report Type: Report from Study
  Country: US (occurrence: US)
  Receive Date: 20170831
  Receipt Date: 20180321
  Transmission Date: 20180508
  Serious: Yes (Hospitalization)
  Sender: FDA-Public Use
  Company Number: US-ACTELION-A-US2017-158792

PATIENT
  Age: 59 Year
  Sex: Male

DRUGS (1)
  1. TRACLEER [Suspect]
     Active Substance: BOSENTAN
     Indication: PULMONARY HYPERTENSION
     Dosage: 125 MG, BID
     Route: 048
     Dates: start: 20170227, end: 20180307

REACTIONS (3)
  - Fatigue [Unknown]
  - Heart disease congenital [Recovering/Resolving]
  - Cardiac operation [Recovering/Resolving]

NARRATIVE: CASE EVENT DATE: 20170801
